FAERS Safety Report 15483859 (Version 3)
Quarter: 2019Q1

REPORT INFORMATION
  Report Type: Report from Study
  Country: BE (occurrence: BE)
  Receive Date: 20181010
  Receipt Date: 20190326
  Transmission Date: 20190417
  Serious: Yes (Other)
  Sender: FDA-Public Use
  Company Number: BE-TESAROUBC-2018-TSO0826-BE

PATIENT

DRUGS (7)
  1. NIRAPARIB [Suspect]
     Active Substance: NIRAPARIB
     Indication: OVARIAN CANCER
     Dosage: 300 MG, UNK
     Route: 048
     Dates: start: 20170718, end: 20170808
  2. NIRAPARIB [Suspect]
     Active Substance: NIRAPARIB
     Dosage: 100 MG, UNK
     Route: 048
     Dates: start: 20170927, end: 20171011
  3. NIRAPARIB [Suspect]
     Active Substance: NIRAPARIB
     Dosage: 200 MG, UNK
     Route: 048
     Dates: start: 20170823, end: 20170912
  4. LITICAN [Concomitant]
     Active Substance: ALIZAPRIDE HYDROCHLORIDE
     Indication: NAUSEA
     Dosage: 50 MG, PRN
     Route: 048
     Dates: start: 20170719, end: 20170722
  5. DAFALGAN [Concomitant]
     Active Substance: ACETAMINOPHEN
     Indication: HEADACHE
     Dosage: 1 G, PRN
     Route: 048
     Dates: start: 20161115
  6. BRUFEN [Concomitant]
     Active Substance: IBUPROFEN
     Indication: BONE PAIN
     Dosage: 600 MG, PRN
     Route: 048
     Dates: start: 20170302
  7. ZINCOTABS [Concomitant]
     Indication: DYSGEUSIA
     Dosage: 1 DF, QD
     Route: 048
     Dates: start: 20170913

REACTIONS (1)
  - Pneumonitis [Recovered/Resolved]

NARRATIVE: CASE EVENT DATE: 20171004
